FAERS Safety Report 14984539 (Version 1)
Quarter: 2018Q2

REPORT INFORMATION
  Report Type: Spontaneous
  Country: US (occurrence: US)
  Receive Date: 20180518
  Receipt Date: 20180518
  Transmission Date: 20180711
  Serious: Yes (Hospitalization)
  Sender: FDA-Public Use
  Company Number: None

PATIENT
  Age: 33 Year
  Sex: Female
  Weight: 69.75 kg

DRUGS (1)
  1. ACID REDUCER PLUS ANTACID [Suspect]
     Active Substance: CALCIUM CARBONATE\FAMOTIDINE\MAGNESIUM HYDROXIDE
     Indication: DYSPEPSIA
     Dosage: ?          QUANTITY:25 DF DOSAGE FORM;?
     Route: 048
     Dates: start: 20180518, end: 20180518

REACTIONS (2)
  - Laryngospasm [None]
  - Vomiting [None]

NARRATIVE: CASE EVENT DATE: 20180518
